FAERS Safety Report 15787118 (Version 4)
Quarter: 2019Q1

REPORT INFORMATION
  Report Type: Report from Study
  Country: BR (occurrence: BR)
  Receive Date: 20190103
  Receipt Date: 20190327
  Transmission Date: 20190417
  Serious: Yes (Other)
  Sender: FDA-Public Use
  Company Number: BR-IONIS PHARMACEUTICALS, INC.-2018IS000042

PATIENT
  Age: 40 Year
  Sex: Female

DRUGS (14)
  1. RIVOTRIL [Concomitant]
     Active Substance: CLONAZEPAM
     Indication: INSOMNIA
     Dosage: 0.4 MG, QD
     Route: 048
     Dates: start: 2012
  2. MULTI A Z [Concomitant]
     Indication: SUPPLEMENTATION THERAPY
     Dosage: 4000 ?G, QD
     Route: 048
     Dates: start: 20151019
  3. CYMBALTA [Concomitant]
     Active Substance: DULOXETINE HYDROCHLORIDE
     Indication: NEURALGIA
     Dosage: 60 MG, QD
     Route: 048
     Dates: start: 201808
  4. TOPIRAMATO [Concomitant]
     Active Substance: TOPIRAMATE
     Indication: MIGRAINE
     Dosage: 50 MG, QD
     Route: 048
     Dates: start: 201505, end: 201810
  5. TOPIRAMATO [Concomitant]
     Active Substance: TOPIRAMATE
     Dosage: 60 MG, QD
     Route: 048
     Dates: start: 201810
  6. VERTIX                             /00141802/ [Concomitant]
     Indication: MIGRAINE
     Dosage: 10 MG, QD
     Route: 048
     Dates: start: 201505
  7. CERAZETTE                          /00754001/ [Concomitant]
     Active Substance: DESOGESTREL
     Indication: MIGRAINE
     Dosage: 75 MG, QD
     Route: 048
     Dates: start: 201507
  8. DERMAZINE [Concomitant]
     Indication: BURNING SENSATION
     Dosage: 2 APPLICATION, TWICE A DAY
     Route: 061
     Dates: start: 20170407
  9. VITAMIN D                          /00107901/ [Concomitant]
     Active Substance: ERGOCALCIFEROL
     Indication: VITAMIN D DEFICIENCY
     Dosage: 2000 IU, 1/WEEK
     Route: 048
     Dates: start: 20160615
  10. CYMBALTA [Concomitant]
     Active Substance: DULOXETINE HYDROCHLORIDE
     Indication: DEPRESSION
     Dosage: 30 MG, QD
     Route: 048
     Dates: start: 20151124, end: 201808
  11. ONDANSETRON [Concomitant]
     Active Substance: ONDANSETRON
     Indication: NAUSEA
     Dosage: 1 DF, OTHER
     Route: 048
     Dates: start: 20180131
  12. CLONAZEPAM. [Concomitant]
     Active Substance: CLONAZEPAM
     Indication: INSOMNIA
     Dosage: UNK
     Dates: start: 2012
  13. INOTERSEN [Suspect]
     Active Substance: INOTERSEN SODIUM
     Indication: HEREDITARY NEUROPATHIC AMYLOIDOSIS
     Dosage: 300 MG, 1/WEEK
     Route: 058
     Dates: start: 20170208, end: 20191129
  14. DIGESAN                            /00576701/ [Concomitant]
     Indication: NAUSEA
     Dosage: 10 MG, 1/WEEK
     Route: 048
     Dates: start: 20180701

REACTIONS (1)
  - Liver disorder [Not Recovered/Not Resolved]

NARRATIVE: CASE EVENT DATE: 20180131
